FAERS Safety Report 15010341 (Version 1)
Quarter: 2018Q2

REPORT INFORMATION
  Report Type: Spontaneous
  Country: US (occurrence: US)
  Receive Date: 20180614
  Receipt Date: 20180614
  Transmission Date: 20180711
  Serious: Yes (Other)
  Sender: FDA-Public Use
  Company Number: US-LUPIN PHARMACEUTICALS INC.-2018-04389

PATIENT
  Age: 32 Year
  Sex: Male

DRUGS (5)
  1. MORPHINE SULPHATE [Suspect]
     Active Substance: MORPHINE SULFATE
     Indication: PRODUCT USED FOR UNKNOWN INDICATION
     Dosage: HIGH DOSES
     Route: 065
  2. LOPERAMIDE [Suspect]
     Active Substance: LOPERAMIDE
     Dosage: REACHING 360MG OF LOPERAMIDE TABLETS EVERY OTHER DAY FOR SEVERAL YEARS
     Route: 065
  3. LOPERAMIDE [Suspect]
     Active Substance: LOPERAMIDE
     Indication: PROPHYLAXIS
     Dosage: UNK
     Route: 065
  4. OXYCODONE AND ACETAMINOPHEN [Suspect]
     Active Substance: ACETAMINOPHEN\OXYCODONE HYDROCHLORIDE
     Indication: PRODUCT USED FOR UNKNOWN INDICATION
     Dosage: UNK
     Route: 065
  5. OXYCODONE [Suspect]
     Active Substance: OXYCODONE
     Indication: PROCEDURAL PAIN
     Dosage: UNK
     Route: 065
     Dates: start: 2008

REACTIONS (10)
  - Atrioventricular block first degree [Recovered/Resolved]
  - Electrocardiogram QT prolonged [Recovered/Resolved]
  - Drug level above therapeutic [Unknown]
  - Constipation [Recovered/Resolved]
  - Cardiotoxicity [Recovered/Resolved]
  - Toxicity to various agents [Recovered/Resolved]
  - Substance use [Unknown]
  - Drug abuse [Unknown]
  - Electrocardiogram QRS complex prolonged [Recovered/Resolved]
  - Drug dependence [Unknown]
